FAERS Safety Report 10359173 (Version 1)
Quarter: 2014Q3

REPORT INFORMATION
  Report Type: Spontaneous
  Country: GR (occurrence: GR)
  Receive Date: 20140804
  Receipt Date: 20140804
  Transmission Date: 20150326
  Serious: Yes (Other)
  Sender: FDA-Public Use
  Company Number: PHHY2014GR093582

PATIENT
  Age: 90 Year
  Sex: Female

DRUGS (2)
  1. EXFORGE HCT [Suspect]
     Active Substance: AMLODIPINE BESYLATE\HYDROCHLOROTHIAZIDE\VALSARTAN
     Indication: HYPERTENSION
     Dosage: 1 DF, UNK (VALS 160 MG, AMLO 5 MG, HCTZ 12.5 MG)
  2. EXFORGE [Suspect]
     Active Substance: AMLODIPINE BESYLATE\VALSARTAN
     Indication: HYPERTENSION
     Dosage: 1 DF, UNK (VALS 160 MG, AMLO 5 MG)

REACTIONS (4)
  - Pruritus [Recovered/Resolved]
  - Hyponatraemia [Recovered/Resolved]
  - Rash generalised [Recovered/Resolved]
  - Wound [Unknown]
